FAERS Safety Report 6107687-6 (Version None)
Quarter: 2009Q1

REPORT INFORMATION
  Report Type: 
  Country: None (occurrence: None)
  Receive Date: 20090309
  Receipt Date: 20090302
  Transmission Date: 20090719
  Serious: Yes (Congenital Anomaly)
  Sender: FDA-Public Use
  Company Number: A0679835A

PATIENT
  Sex: Male

DRUGS (2)
  1. PAXIL [Suspect]
     Indication: DEPRESSION
     Dosage: 30MG PER DAY
     Dates: start: 20000627, end: 20020710
  2. PAROXETINE HCL [Suspect]
     Dates: start: 20040907, end: 20051201

REACTIONS (6)
  - BICUSPID AORTIC VALVE [None]
  - CARDIAC ASTHMA [None]
  - COARCTATION OF THE AORTA [None]
  - DRUG EXPOSURE DURING PREGNANCY [None]
  - LEFT VENTRICULAR HYPERTROPHY [None]
  - MULTIPLE CONGENITAL ABNORMALITIES [None]
